FAERS Safety Report 18069119 (Version 1)
Quarter: 2020Q3

REPORT INFORMATION
  Report Type: Spontaneous
  Country: US (occurrence: US)
  Receive Date: 20200725
  Receipt Date: 20200725
  Transmission Date: 20201103
  Serious: Yes (Other)
  Sender: FDA-Public Use
  Company Number: US-ALEXION-A202010585

PATIENT
  Sex: Female

DRUGS (4)
  1. IMMUNOGLOBULIN I.V [Suspect]
     Active Substance: HUMAN IMMUNOGLOBULIN G
     Indication: IMMUNODEFICIENCY COMMON VARIABLE
     Dosage: UNK UNK, Q2W
     Route: 042
  2. IMMUNOGLOBULIN I.V [Suspect]
     Active Substance: HUMAN IMMUNOGLOBULIN G
     Dosage: UNK
     Route: 042
  3. SOLIRIS [Suspect]
     Active Substance: ECULIZUMAB
     Dosage: UNK
     Route: 065
  4. SOLIRIS [Suspect]
     Active Substance: ECULIZUMAB
     Indication: MYASTHENIA GRAVIS
     Dosage: UNK UNK, Q2W
     Route: 065

REACTIONS (11)
  - Muscular weakness [Recovering/Resolving]
  - Myasthenia gravis crisis [Recovered/Resolved]
  - Dyspnoea [Recovering/Resolving]
  - Foot fracture [Unknown]
  - Impaired healing [Unknown]
  - Fall [Unknown]
  - Tongue disorder [Recovering/Resolving]
  - Dysphonia [Recovered/Resolved]
  - Balance disorder [Unknown]
  - Dysphagia [Recovering/Resolving]
  - Fear [Recovered/Resolved]
